FAERS Safety Report 20097089 (Version 3)
Quarter: 2022Q1

REPORT INFORMATION
  Report Type: Report from Study
  Country: US (occurrence: US)
  Receive Date: 20211122
  Receipt Date: 20220122
  Transmission Date: 20220424
  Serious: Yes (Hospitalization, Other)
  Sender: FDA-Public Use
  Company Number: US-NOVARTISPH-NVSC2018US021095

PATIENT
  Age: 55 Year
  Sex: Male
  Weight: 108 kg

DRUGS (14)
  1. LUTATHERA [Suspect]
     Active Substance: LUTETIUM OXODOTREOTIDE LU-177
     Indication: Neuroendocrine carcinoma metastatic
     Dosage: UNK
     Route: 065
  2. OCTREOTIDE [Suspect]
     Active Substance: OCTREOTIDE
     Indication: Neuroendocrine carcinoma metastatic
     Dosage: 20 MG, Q4W (Q28 DAYS, 12 DOSES) (SOLUTION)
     Route: 030
     Dates: start: 20180314
  3. OCTREOTIDE [Suspect]
     Active Substance: OCTREOTIDE
  4. OCTREOTIDE [Suspect]
     Active Substance: OCTREOTIDE
  5. EVEROLIMUS [Suspect]
     Active Substance: EVEROLIMUS
     Indication: Neuroendocrine carcinoma metastatic
     Dosage: UNK
     Route: 065
  6. PREDNISONE [Suspect]
     Active Substance: PREDNISONE
     Indication: Neuroendocrine carcinoma metastatic
     Dosage: 40 MG
     Route: 065
  7. PREDNISONE [Suspect]
     Active Substance: PREDNISONE
     Dosage: 100 MG
     Route: 065
  8. SUNITINIB [Suspect]
     Active Substance: SUNITINIB
     Indication: Product used for unknown indication
     Dosage: UNK
     Route: 065
     Dates: start: 20170920
  9. RITUXIMAB [Suspect]
     Active Substance: RITUXIMAB
     Indication: Product used for unknown indication
     Dosage: UNK
     Route: 065
     Dates: end: 20200330
  10. ENTECAVIR [Suspect]
     Active Substance: ENTECAVIR
     Indication: Product used for unknown indication
     Dosage: 0.5 MG, QD
     Route: 048
  11. PREVACID [Concomitant]
     Active Substance: LANSOPRAZOLE
     Indication: Product used for unknown indication
     Dosage: 30 MG, QD
     Route: 048
     Dates: start: 20081215
  12. CREON [Concomitant]
     Active Substance: PANCRELIPASE AMYLASE\PANCRELIPASE LIPASE\PANCRELIPASE PROTEASE
     Indication: Product used for unknown indication
     Dosage: 3 DF (6000 MG), TID
     Route: 048
  13. LOMOTIL [Concomitant]
     Active Substance: ATROPINE SULFATE\DIPHENOXYLATE HYDROCHLORIDE
     Indication: Product used for unknown indication
     Dosage: 1 DF, BID, PRN
     Route: 048
  14. PERCOCET [Concomitant]
     Active Substance: ACETAMINOPHEN\OXYCODONE HYDROCHLORIDE
     Indication: Product used for unknown indication
     Dosage: 1 DF, Q4H, PRN
     Route: 048

REACTIONS (44)
  - Rectal haemorrhage [Unknown]
  - Haemoglobin decreased [Unknown]
  - Colitis [Unknown]
  - Oesophagitis [Unknown]
  - Inflammation [Unknown]
  - Scan abdomen abnormal [Unknown]
  - Carcinoid syndrome [Unknown]
  - Iridocyclitis [Unknown]
  - Metastases to the mediastinum [Unknown]
  - Gastrointestinal haemorrhage [Unknown]
  - Metastases to soft tissue [Unknown]
  - Lymphadenopathy [Unknown]
  - Platelet count decreased [Unknown]
  - Haematemesis [Unknown]
  - Ascites [Unknown]
  - Thrombocytopenia [Unknown]
  - Oedema peripheral [Unknown]
  - Deep vein thrombosis [Unknown]
  - Pulmonary embolism [Unknown]
  - Metastases to chest wall [Unknown]
  - Metastases to lung [Unknown]
  - Metastases to liver [Unknown]
  - Metastases to bone [Unknown]
  - Neuroendocrine carcinoma metastatic [Unknown]
  - Malignant neoplasm progression [Unknown]
  - Cancer pain [Unknown]
  - Blood creatinine increased [Unknown]
  - Blood oestrogen abnormal [Unknown]
  - Incisional hernia [Unknown]
  - Ear pain [Unknown]
  - Steatorrhoea [Unknown]
  - Latent syphilis [Unknown]
  - Weight decreased [Unknown]
  - Anaemia [Unknown]
  - Abdominal distension [Unknown]
  - Heart rate increased [Unknown]
  - Body mass index increased [Unknown]
  - Dyspnoea exertional [Unknown]
  - Blood chloride increased [Unknown]
  - Protein total decreased [Unknown]
  - Dyspnoea [Unknown]
  - Fatigue [Unknown]
  - Diarrhoea [Unknown]
  - Intentional product use issue [Unknown]

NARRATIVE: CASE EVENT DATE: 20141201
